FAERS Safety Report 10248110 (Version 2)
Quarter: 2014Q2

REPORT INFORMATION
  Report Type: Report from Study
  Country: JP (occurrence: JP)
  Receive Date: 20140619
  Receipt Date: 20140619
  Transmission Date: 20141212
  Serious: Yes (Other)
  Sender: FDA-Public Use
  Company Number: JP-AMGEN-JPNCT2013039459

PATIENT
  Age: 64 Year
  Sex: Male
  Weight: 68 kg

DRUGS (8)
  1. DENOSUMAB [Suspect]
     Indication: PROSTATE CANCER
     Dosage: 120 MG/2012/9/26,10/24
     Route: 058
     Dates: start: 20120926, end: 20121024
  2. DENOSUMAB [Suspect]
     Indication: METASTASES TO BONE
  3. ODYNE [Concomitant]
     Indication: PROSTATE CANCER
     Route: 048
     Dates: start: 20120502, end: 20121023
  4. CALCIUM LACTATE [Concomitant]
     Indication: PROPHYLAXIS
     Dosage: 3G/DAY
     Route: 048
     Dates: start: 20120926, end: 20121106
  5. LEUPLIN [Concomitant]
     Indication: PROSTATE CANCER
     Dosage: 11.25 MG, QD
     Route: 058
     Dates: start: 20111019, end: 20120926
  6. ADEFURONIC [Concomitant]
     Indication: PYREXIA
     Route: 050
     Dates: start: 20121005, end: 20121005
  7. CASODEX [Concomitant]
     Dosage: UNK
     Route: 065
     Dates: start: 20121024, end: 20121218
  8. ESTRACYT [Concomitant]
     Dosage: UNK
     Route: 065
     Dates: start: 20121024, end: 20130106

REACTIONS (1)
  - Interstitial lung disease [Recovered/Resolved]
